FAERS Safety Report 12127647 (Version 1)
Quarter: 2016Q1

REPORT INFORMATION
  Report Type: Spontaneous
  Country: JP (occurrence: JP)
  Receive Date: 20160229
  Receipt Date: 20160229
  Transmission Date: 20160526
  Serious: Yes (Hospitalization, Other)
  Sender: FDA-Public Use
  Company Number: JP-TEVA-637158ISR

PATIENT
  Age: 79 Year
  Sex: Male
  Weight: 68 kg

DRUGS (5)
  1. ZOTAROLIMUS [Concomitant]
     Active Substance: ZOTAROLIMUS
  2. LIDOCAINE. [Suspect]
     Active Substance: LIDOCAINE
     Indication: LOCAL ANAESTHESIA
     Dosage: 1 %
     Route: 065
  3. ISOSORBIDE DINITRATE. [Suspect]
     Active Substance: ISOSORBIDE DINITRATE
     Indication: ARTERIOSPASM CORONARY
     Route: 065
  4. PREDNISOLONE. [Concomitant]
     Active Substance: PREDNISOLONE
     Indication: POLYMYALGIA RHEUMATICA
     Dosage: 10 MILLIGRAM DAILY;
     Route: 065
  5. PREDNISOLONE. [Concomitant]
     Active Substance: PREDNISOLONE
     Indication: POLYMYALGIA RHEUMATICA
     Dosage: 5 MILLIGRAM DAILY;
     Route: 065

REACTIONS (2)
  - Kounis syndrome [Unknown]
  - Device dislocation [Recovered/Resolved]
